FAERS Safety Report 5905839-9 (Version None)
Quarter: 2008Q4

REPORT INFORMATION
  Report Type: 
  Country: None (occurrence: None)
  Receive Date: 20081001
  Receipt Date: 20081001
  Transmission Date: 20090506
  Serious: Yes (Hospitalization)
  Sender: FDA-Public Use
  Company Number: None

PATIENT
  Age: 62 Year
  Sex: Male
  Weight: 69.94 kg

DRUGS (1)
  1. LISINOPRIL [Suspect]
     Indication: HYPERTENSION
     Dosage: 40 MG EVERYDAY PO
     Route: 048
     Dates: start: 20010918, end: 20080805

REACTIONS (5)
  - ANGIOEDEMA [None]
  - RASH MACULO-PAPULAR [None]
  - RASH PRURITIC [None]
  - TREATMENT NONCOMPLIANCE [None]
  - URTICARIA [None]
